FAERS Safety Report 10031601 (Version 1)
Quarter: 2014Q1

REPORT INFORMATION
  Report Type: Spontaneous
  Country: US (occurrence: US)
  Receive Date: 20140324
  Receipt Date: 20140324
  Transmission Date: 20141002
  Serious: Yes (Other)
  Sender: FDA-Public Use
  Company Number: US-PFIZER INC-2014080600

PATIENT
  Age: 77 Year
  Sex: Female
  Weight: 48.98 kg

DRUGS (1)
  1. VFEND [Suspect]
     Indication: BRONCHOPULMONARY ASPERGILLOSIS
     Dosage: UNK
     Dates: start: 201401, end: 2014

REACTIONS (3)
  - Hallucination [Unknown]
  - Vision blurred [Unknown]
  - Local swelling [Unknown]
